FAERS Safety Report 13373884 (Version 1)
Quarter: 2017Q1

REPORT INFORMATION
  Report Type: Spontaneous
  Country: US (occurrence: US)
  Receive Date: 20170327
  Receipt Date: 20170327
  Transmission Date: 20170429
  Serious: No
  Sender: FDA-Public Use
  Company Number: None

PATIENT
  Sex: Female
  Weight: 72.64 kg

DRUGS (3)
  1. LIDEX [Suspect]
     Active Substance: FLUOCINONIDE
     Indication: PRURITUS
     Route: 061
  2. KETOCONAZOLE SHAMPOO [Suspect]
     Active Substance: KETOCONAZOLE
  3. BETAMETHASONE VALERATE 10% [Suspect]
     Active Substance: BETAMETHASONE VALERATE

REACTIONS (7)
  - Cough [None]
  - Hair colour changes [None]
  - Pruritus [None]
  - Therapy non-responder [None]
  - Urticaria [None]
  - Erythema [None]
  - Rash [None]
